FAERS Safety Report 4745387-5 (Version None)
Quarter: 2005Q3

REPORT INFORMATION
  Report Type: 
  Country: None (occurrence: None)
  Receive Date: 20050815
  Receipt Date: 20041006
  Transmission Date: 20060218
  Serious: Yes (Death)
  Sender: FDA-Public Use
  Company Number: 20041000447

PATIENT
  Age: 8 Year
  Sex: 0

DRUGS (3)
  1. CHLORPROMAZINE [Suspect]
     Dates: end: 20030101
  2. HALOPERIDOL [Suspect]
     Dates: end: 20030101
  3. RISPERIDONE [Suspect]
     Dates: end: 20030101

REACTIONS (2)
  - ADVERSE DRUG REACTION [None]
  - DEATH [None]
